FAERS Safety Report 22323774 (Version 1)
Quarter: 2023Q2

REPORT INFORMATION
  Report Type: Report from Study
  Country: US (occurrence: US)
  Receive Date: 20230516
  Receipt Date: 20230516
  Transmission Date: 20230722
  Serious: Yes (Hospitalization)
  Sender: FDA-Public Use
  Company Number: US-EXELIXIS-CABO-23062192

PATIENT
  Sex: Female

DRUGS (3)
  1. CABOMETYX [Suspect]
     Active Substance: CABOZANTINIB S-MALATE
     Indication: Renal cancer
     Dosage: 40 MG, QD
     Route: 048
  2. CABOMETYX [Suspect]
     Active Substance: CABOZANTINIB S-MALATE
     Dosage: 20 MG, QD
     Route: 048
  3. HYDROCODONE [Suspect]
     Active Substance: HYDROCODONE
     Indication: Pain
     Dosage: UNK

REACTIONS (12)
  - Hand-foot-and-mouth disease [Unknown]
  - Hiccups [Not Recovered/Not Resolved]
  - Blister [Not Recovered/Not Resolved]
  - Acne [Unknown]
  - Pain [Not Recovered/Not Resolved]
  - Cough [Not Recovered/Not Resolved]
  - Dysgeusia [Unknown]
  - Pain in extremity [Unknown]
  - Dry skin [Unknown]
  - Bone neoplasm [Unknown]
  - Urinary tract infection [Unknown]
  - Fatigue [Not Recovered/Not Resolved]
